FAERS Safety Report 9230003 (Version 2)
Quarter: 2017Q4

REPORT INFORMATION
  Report Type: Spontaneous
  Country: DE (occurrence: DE)
  Receive Date: 20130415
  Receipt Date: 20171207
  Transmission Date: 20180321
  Serious: Yes (Life-Threatening)
  Sender: FDA-Public Use
  Company Number: DE-ACCORD-017179

PATIENT
  Age: 35 Year
  Sex: Female
  Weight: 58 kg

DRUGS (5)
  1. GRANISETRON [Concomitant]
     Active Substance: GRANISETRON
  2. GEMCITABINE ACCORD [Suspect]
     Active Substance: GEMCITABINE HYDROCHLORIDE
     Indication: TRANSITIONAL CELL CARCINOMA
     Dosage: GIVEN 2 TIMES TO PATIENT ON 19-MAR-13 + ON 26-MAR-13 FOR 30 MIN
     Route: 042
     Dates: start: 20130319
  3. CARBOPLATIN MEDAC [Suspect]
     Active Substance: CARBOPLATIN
     Indication: TRANSITIONAL CELL CARCINOMA
     Dosage: 60 MIN
     Route: 042
     Dates: start: 20130326
  4. DEXAMETHASONE. [Concomitant]
     Active Substance: DEXAMETHASONE
  5. PANTOPRAZOLE [Concomitant]
     Active Substance: PANTOPRAZOLE

REACTIONS (9)
  - Nausea [Recovered/Resolved]
  - Pleural effusion [Recovered/Resolved]
  - Rhabdomyolysis [Recovered/Resolved]
  - Pericardial effusion [Recovered/Resolved]
  - Generalised oedema [Recovered/Resolved]
  - Renal failure [Recovered/Resolved]
  - Vomiting [Recovered/Resolved]
  - Off label use [Unknown]
  - Capillary leak syndrome [Recovered/Resolved]

NARRATIVE: CASE EVENT DATE: 20130329
